FAERS Safety Report 14881786 (Version 3)
Quarter: 2019Q1

REPORT INFORMATION
  Report Type: Spontaneous
  Country: JP (occurrence: JP)
  Receive Date: 20180511
  Receipt Date: 20190221
  Transmission Date: 20190417
  Serious: Yes (Life-Threatening, Hospitalization, Disabling)
  Sender: FDA-Public Use
  Company Number: JP-INCYTE CORPORATION-2018IN001446

PATIENT

DRUGS (9)
  1. JAKAVI [Suspect]
     Active Substance: RUXOLITINIB
     Indication: POLYCYTHAEMIA VERA
     Dosage: 5 MG, BID
     Route: 048
     Dates: start: 20170706, end: 20170830
  2. STICKZENOL A [Concomitant]
     Indication: ARTHRITIS
     Dosage: APPROPRIATELY
     Route: 061
     Dates: start: 20111118, end: 20180124
  3. JAKAVI [Suspect]
     Active Substance: RUXOLITINIB
     Dosage: 15 MG/DAY (10 MG AND 5 MG PER DOSE)
     Route: 048
     Dates: start: 20170831, end: 20171025
  4. BAYASPIRIN [Suspect]
     Active Substance: ASPIRIN
     Indication: PROPHYLAXIS
     Dosage: 100 MG, QD
     Route: 048
     Dates: start: 20111118, end: 20120117
  5. HYDREA [Suspect]
     Active Substance: HYDROXYUREA
     Indication: POLYCYTHAEMIA VERA
     Dosage: 500 MG, QD
     Route: 048
     Dates: start: 20120112, end: 20180124
  6. JAKAVI [Suspect]
     Active Substance: RUXOLITINIB
     Dosage: 10 MG, BID
     Route: 048
     Dates: start: 20171025, end: 20171206
  7. JAKAVI [Suspect]
     Active Substance: RUXOLITINIB
     Dosage: 15 MG/DAY (10 MG AND 5 MG PER DOSE)
     Route: 048
     Dates: start: 20181207
  8. NEXIUM [Concomitant]
     Active Substance: ESOMEPRAZOLE MAGNESIUM
     Indication: PROPHYLAXIS AGAINST GASTROINTESTINAL ULCER
     Dosage: 20 MG, QD
     Route: 048
     Dates: start: 20170706, end: 20180124
  9. JAKAVI [Suspect]
     Active Substance: RUXOLITINIB
     Dosage: 10 MG, BID
     Route: 048
     Dates: start: 20180118, end: 20180124

REACTIONS (6)
  - Coagulation factor decreased [Unknown]
  - Platelet count increased [Recovering/Resolving]
  - Acquired Von Willebrand^s disease [Recovering/Resolving]
  - Spinal epidural haematoma [Recovered/Resolved with Sequelae]
  - Paralysis [Not Recovered/Not Resolved]
  - Haemorrhage [Not Recovered/Not Resolved]

NARRATIVE: CASE EVENT DATE: 20170803
